FAERS Safety Report 13066628 (Version 1)
Quarter: 2016Q4

REPORT INFORMATION
  Report Type: Spontaneous
  Country: GB (occurrence: GB)
  Receive Date: 20161227
  Receipt Date: 20161227
  Transmission Date: 20170207
  Serious: Yes (Other)
  Sender: FDA-Public Use
  Company Number: GB-TEVA-722147ACC

PATIENT
  Age: 28 Year
  Sex: Male

DRUGS (5)
  1. LOPERAMIDE [Concomitant]
     Active Substance: LOPERAMIDE
     Indication: PRODUCT USED FOR UNKNOWN INDICATION
  2. OMEPRAZOLE. [Concomitant]
     Active Substance: OMEPRAZOLE
     Indication: PRODUCT USED FOR UNKNOWN INDICATION
     Dosage: 20 MILLIGRAM DAILY;
  3. TAMOXIFEN [Suspect]
     Active Substance: TAMOXIFEN
     Indication: GYNAECOMASTIA
     Dosage: 20 MG, UNK
     Dates: start: 201608
  4. PARACETAMOL [Concomitant]
     Active Substance: ACETAMINOPHEN
     Indication: PRODUCT USED FOR UNKNOWN INDICATION
     Dosage: 2 TABLETS 4 TIMES A DAY
  5. CREON [Concomitant]
     Active Substance: PANCRELIPASE AMYLASE\PANCRELIPASE LIPASE\PANCRELIPASE PROTEASE
     Indication: PRODUCT USED FOR UNKNOWN INDICATION
     Dosage: 2500 CAPSULES (6 CAPSULES TAKEN WITH MEALS, 3 WITH SNACKS)

REACTIONS (6)
  - Dermatitis [Unknown]
  - Respiratory tract infection [Unknown]
  - Pancreatic insufficiency [Unknown]
  - Anxiety [Unknown]
  - Off label use [Unknown]
  - Nail infection [Unknown]
